FAERS Safety Report 6300530-1 (Version None)
Quarter: 2009Q3

REPORT INFORMATION
  Report Type: 
  Country: None (occurrence: None)
  Receive Date: 20090806
  Receipt Date: 20090302
  Transmission Date: 20100115
  Serious: No
  Sender: FDA-Public Use
  Company Number: US-ABBOTT-09P-163-0560481-00

PATIENT
  Sex: Male
  Weight: 59.02 kg

DRUGS (2)
  1. DEPAKOTE ER [Suspect]
     Indication: BIPOLAR DISORDER
     Dosage: 1/2 PILL IN AM AND MIDDAY, 1 PILL IN PM.
     Route: 048
     Dates: start: 20080801
  2. CONCERTA [Concomitant]
     Indication: ATTENTION DEFICIT/HYPERACTIVITY DISORDER
     Route: 048

REACTIONS (8)
  - ABDOMINAL DISCOMFORT [None]
  - DEPRESSION [None]
  - HEADACHE [None]
  - NAUSEA [None]
  - NERVOUSNESS [None]
  - PSYCHOMOTOR HYPERACTIVITY [None]
  - SELF INJURIOUS BEHAVIOUR [None]
  - VISION BLURRED [None]
